FAERS Safety Report 20132128 (Version 2)
Quarter: 2021Q4

REPORT INFORMATION
  Report Type: Report from Study
  Country: TH (occurrence: TH)
  Receive Date: 20211130
  Receipt Date: 20211216
  Transmission Date: 20220303
  Serious: Yes (Hospitalization)
  Sender: FDA-Public Use
  Company Number: TH-BoehringerIngelheim-2021-BI-136839

PATIENT
  Age: 74 Year
  Sex: Female
  Weight: 66.2 kg

DRUGS (2)
  1. OFEV [Suspect]
     Active Substance: NINTEDANIB
     Indication: Idiopathic pulmonary fibrosis
     Dosage: 150 MG PO BID
     Route: 048
     Dates: start: 20210624, end: 20211105
  2. OFEV [Suspect]
     Active Substance: NINTEDANIB
     Dosage: 150 MG OD
     Route: 048
     Dates: start: 20211106

REACTIONS (2)
  - Diarrhoea [Recovered/Resolved]
  - Dehydration [Recovered/Resolved]

NARRATIVE: CASE EVENT DATE: 20211103
